FAERS Safety Report 13727034 (Version 3)
Quarter: 2017Q3

REPORT INFORMATION
  Report Type: Spontaneous
  Country: GB (occurrence: GB)
  Receive Date: 20170706
  Receipt Date: 20170811
  Transmission Date: 20171127
  Serious: Yes (Death)
  Sender: FDA-Public Use
  Company Number: GB-ABBVIE-17P-167-2028795-00

PATIENT
  Sex: Male
  Weight: 116 kg

DRUGS (1)
  1. VENETOCLAX. [Suspect]
     Active Substance: VENETOCLAX
     Indication: MANTLE CELL LYMPHOMA
     Route: 048
     Dates: start: 20170701

REACTIONS (4)
  - Tachyarrhythmia [Fatal]
  - Fluid imbalance [Fatal]
  - Off label use [Unknown]
  - Malignant neoplasm progression [Fatal]
